FAERS Safety Report 20606910 (Version 1)
Quarter: 2022Q1

REPORT INFORMATION
  Report Type: Spontaneous
  Country: CN (occurrence: CN)
  Receive Date: 20220317
  Receipt Date: 20220317
  Transmission Date: 20220423
  Serious: Yes (Other)
  Sender: FDA-Public Use
  Company Number: CN-ABBVIE-22K-035-4319897-00

PATIENT
  Age: 73 Year
  Sex: Male
  Weight: 63 kg

DRUGS (3)
  1. VALPROATE SODIUM [Suspect]
     Active Substance: VALPROATE SODIUM
     Indication: Epilepsy
     Route: 042
     Dates: start: 20200608, end: 20200610
  2. NALMEFENE HYDROCHLORIDE [Concomitant]
     Active Substance: NALMEFENE HYDROCHLORIDE
     Indication: Symptomatic treatment
  3. LACTULOSE [Concomitant]
     Active Substance: LACTULOSE
     Indication: Symptomatic treatment

REACTIONS (1)
  - Toxic encephalopathy [Recovering/Resolving]

NARRATIVE: CASE EVENT DATE: 20200610
